FAERS Safety Report 10353997 (Version 2)
Quarter: 2015Q1

REPORT INFORMATION
  Report Type: Spontaneous
  Country: US (occurrence: US)
  Receive Date: 20140731
  Receipt Date: 20150326
  Transmission Date: 20150720
  Serious: Yes (Hospitalization)
  Sender: FDA-Public Use
  Company Number: US-NOVOPROD-417763

PATIENT
  Age: 66 Year
  Sex: Female
  Weight: 79.37 kg

DRUGS (3)
  1. BYETTA [Suspect]
     Active Substance: EXENATIDE
     Dosage: 10 ?G, BID
     Route: 058
     Dates: start: 20091015, end: 20100407
  2. VICTOZA [Suspect]
     Active Substance: LIRAGLUTIDE
     Indication: TYPE 2 DIABETES MELLITUS
     Dosage: 18MG/3ML TWICE DAILY
     Route: 058
     Dates: start: 20100407, end: 20100921
  3. BYETTA [Suspect]
     Active Substance: EXENATIDE
     Indication: TYPE 2 DIABETES MELLITUS
     Dosage: 5 ?G, BID
     Route: 058
     Dates: start: 20090827, end: 20091015

REACTIONS (1)
  - Pancreatic carcinoma [Unknown]

NARRATIVE: CASE EVENT DATE: 20100921
